FAERS Safety Report 10523567 (Version 4)
Quarter: 2014Q4

REPORT INFORMATION
  Report Type: Spontaneous
  Country: US (occurrence: US)
  Receive Date: 20141017
  Receipt Date: 20141217
  Transmission Date: 20150528
  Serious: Yes (Hospitalization)
  Sender: FDA-Public Use
  Company Number: US-UNITED THERAPEUTICS-UNT-2014-009129

PATIENT
  Age: 64 Year
  Sex: Female
  Weight: 47.62 kg

DRUGS (5)
  1. LETAIRIS [Concomitant]
     Active Substance: AMBRISENTAN
     Indication: PRODUCT USED FOR UNKNOWN INDICATION
  2. COUMADIN [Concomitant]
     Active Substance: WARFARIN SODIUM
     Indication: PRODUCT USED FOR UNKNOWN INDICATION
  3. REMODULIN [Suspect]
     Active Substance: TREPROSTINIL
     Indication: COR PULMONALE CHRONIC
     Dosage: 0.032 ?G/KG, CONTINUING
     Route: 041
     Dates: start: 20140102
  4. REMODULIN [Suspect]
     Active Substance: TREPROSTINIL
     Indication: PULMONARY HYPERTENSION
     Dosage: 0.032 ?G/KG, CONTINUING
     Route: 041
     Dates: start: 20140102
  5. ADCIRCA [Concomitant]
     Active Substance: TADALAFIL
     Indication: PRODUCT USED FOR UNKNOWN INDICATION

REACTIONS (5)
  - Psychotic disorder [Recovered/Resolved]
  - Paranoia [Unknown]
  - Delirium [Unknown]
  - Confusional state [Unknown]
  - Mental status changes [Recovered/Resolved]

NARRATIVE: CASE EVENT DATE: 2014
